FAERS Safety Report 10175246 (Version 1)
Quarter: 2014Q2

REPORT INFORMATION
  Report Type: Spontaneous
  Country: US (occurrence: US)
  Receive Date: 20140515
  Receipt Date: 20140515
  Transmission Date: 20141212
  Serious: No
  Sender: FDA-Public Use
  Company Number: US-VIVUS-2014V1000178

PATIENT
  Age: 47 Year
  Sex: Female
  Weight: 153.91 kg

DRUGS (4)
  1. QSYMIA 3.75MG/23MG [Suspect]
     Indication: WEIGHT DECREASED
     Route: 048
     Dates: start: 20140324, end: 20140404
  2. AMLODIPINE [Concomitant]
     Indication: HYPERTENSION
     Dosage: STARTED 1.5 YEARS AGO
     Route: 048
  3. DICLOFENAC [Concomitant]
     Indication: INFLAMMATION
     Route: 048
     Dates: start: 2013
  4. TYLENOL ARTHRITIS [Concomitant]
     Indication: PAIN
     Dates: start: 2013

REACTIONS (9)
  - Pain [Not Recovered/Not Resolved]
  - Restlessness [Not Recovered/Not Resolved]
  - Vision blurred [Not Recovered/Not Resolved]
  - Dry mouth [Not Recovered/Not Resolved]
  - Insomnia [Not Recovered/Not Resolved]
  - Fatigue [Not Recovered/Not Resolved]
  - Paraesthesia [Not Recovered/Not Resolved]
  - Hypoaesthesia [Not Recovered/Not Resolved]
  - Back pain [Not Recovered/Not Resolved]
